FAERS Safety Report 12952424 (Version 6)
Quarter: 2022Q3

REPORT INFORMATION
  Report Type: Spontaneous
  Country: US (occurrence: US)
  Receive Date: 20161117
  Receipt Date: 20220714
  Transmission Date: 20221027
  Serious: No
  Sender: FDA-Public Use
  Company Number: US-SA-2016SA178184

PATIENT
  Age: 75 Year
  Sex: Female

DRUGS (2)
  1. TOUJEO [Suspect]
     Active Substance: INSULIN GLARGINE
     Indication: Type 2 diabetes mellitus
     Dosage: 50 IU, QD
     Route: 065
  2. TOUJEO [Suspect]
     Active Substance: INSULIN GLARGINE
     Indication: Type 2 diabetes mellitus
     Dosage: 9 IU, QD
     Route: 065
     Dates: start: 2020

REACTIONS (3)
  - Peripheral swelling [Unknown]
  - Blood glucose decreased [Unknown]
  - Headache [Unknown]

NARRATIVE: CASE EVENT DATE: 20200101
